FAERS Safety Report 5285479-8 (Version None)
Quarter: 2007Q1

REPORT INFORMATION
  Report Type: 
  Country: None (occurrence: None)
  Receive Date: 20070328
  Receipt Date: 20070312
  Transmission Date: 20070707
  Serious: Yes (Hospitalization)
  Sender: FDA-Public Use
  Company Number: 2007000449

PATIENT
  Age: 82 Year
  Sex: Female
  Weight: 58.2 kg

DRUGS (2)
  1. ERLOTINIB (TABLET) (ERLOTINIB HCL) [Suspect]
     Indication: NON-SMALL CELL LUNG CANCER
     Dosage: 150 MG (QD) ORAL
     Route: 048
     Dates: start: 20051201
  2. BEVACIZUMAB (INJECTION FOR INFUSION) [Suspect]
     Indication: NON-SMALL CELL LUNG CANCER
     Dosage: 15 MG/KG (Q3W) INTRAVENOUS
     Route: 042
     Dates: start: 20051201

REACTIONS (4)
  - CARDIOMYOPATHY [None]
  - EJECTION FRACTION DECREASED [None]
  - PULMONARY HYPERTENSION [None]
  - VENTRICULAR DYSFUNCTION [None]
